FAERS Safety Report 8282092-5 (Version None)
Quarter: 2012Q2

REPORT INFORMATION
  Report Type: 
  Country: None (occurrence: None)
  Receive Date: 20120413
  Receipt Date: 20120330
  Transmission Date: 20120825
  Serious: Yes (Other)
  Sender: FDA-Public Use
  Company Number: BR-AMGEN-BRASP2010008519

PATIENT
  Age: 55 Year
  Sex: Female
  Weight: 79 kg

DRUGS (10)
  1. METHOTREXATE [Concomitant]
     Indication: RHEUMATOID ARTHRITIS
     Dosage: 5 MG, UNK
     Route: 048
  2. ADALAT [Concomitant]
     Indication: HYPERTENSION
     Dosage: 20 MG, UNK
  3. RANITIDINE [Concomitant]
     Indication: GASTRIC DISORDER
     Dosage: UNK
  4. TRAMADOL HCL [Concomitant]
     Indication: PAIN
     Dosage: 50 MG, UNK
  5. ENBREL [Suspect]
     Indication: RHEUMATOID ARTHRITIS
     Dosage: 25 MG, TWICE WEEKLY
     Route: 058
     Dates: start: 20101119
  6. SIMVASTATIN [Concomitant]
     Dosage: UNK
  7. FOLIC ACID [Concomitant]
     Indication: ANAEMIA PROPHYLAXIS
     Dosage: 5 MG, 2X/WEEK
  8. ENALAPRIL MALEATE [Concomitant]
     Indication: HYPERTENSION
     Dosage: 10 MG, UNK
  9. PREDNISONE [Concomitant]
     Dosage: 20 MG, 1X/DAY
  10. ENBREL [Suspect]
     Dosage: 50 MG, QWK
     Route: 058

REACTIONS (5)
  - COLD SWEAT [None]
  - SOMNOLENCE [None]
  - DIZZINESS [None]
  - BLOOD PRESSURE DECREASED [None]
  - FEELING ABNORMAL [None]
